FAERS Safety Report 8538139-1 (Version None)
Quarter: 2012Q3

REPORT INFORMATION
  Report Type: 
  Country: None (occurrence: None)
  Receive Date: 20120726
  Receipt Date: 20120716
  Transmission Date: 20120928
  Serious: No
  Sender: FDA-Public Use
  Company Number: US-009507513-1207USA005284

PATIENT

DRUGS (6)
  1. VITAMINS (UNSPECIFIED) [Concomitant]
  2. METAMUCIL-2 [Concomitant]
  3. LIPITOR [Concomitant]
  4. LISINOPRIL [Concomitant]
  5. PROPECIA [Suspect]
     Indication: ALOPECIA
     Dosage: 1 MG, QD
     Route: 048
     Dates: start: 20120623, end: 20120712
  6. ALLOPURINOL [Concomitant]

REACTIONS (1)
  - ERECTILE DYSFUNCTION [None]
